FAERS Safety Report 9790893 (Version 2)
Quarter: 2013Q4

REPORT INFORMATION
  Report Type: Spontaneous
  Country: AU (occurrence: US)
  Receive Date: 20131231
  Receipt Date: 20131231
  Transmission Date: 20140711
  Serious: Yes (Hospitalization, Other)
  Sender: FDA-Public Use
  Company Number: US-PFIZER INC-2012279961

PATIENT
  Age: 70 Year
  Sex: Male

DRUGS (8)
  1. LYRICA [Suspect]
     Dosage: 50 MG, 3X/DAY, 4 DAYS EARLIER
     Route: 048
  2. LYRICA [Interacting]
     Dosage: 100 MG, 3X/DAY
     Route: 048
  3. ZOCOR ^MERCK^ [Interacting]
     Dosage: 20 MG DAILY (STARTED 4 DAYS EARLIER)
     Route: 048
  4. ZESTRIL [Concomitant]
     Dosage: 5 MG/DAY
  5. AMITRIPTYLINE [Concomitant]
     Dosage: 25 MG IN THE MORNING, 50 MG AT BEDTIME
     Route: 048
  6. OXYCONTIN [Concomitant]
     Dosage: 80 MG EVERY 8 HOURS
     Route: 048
  7. OXYCODONE HYDROCHLORIDE [Concomitant]
     Dosage: 30 MG EVERY 4 HOURS AS NEEDED
     Route: 048
  8. GLUCOPHAGE ^BRISTOL-MYERS SQUIBB^ [Concomitant]
     Dosage: 500 MG, 2X/DAY

REACTIONS (3)
  - Drug interaction [Recovering/Resolving]
  - Rhabdomyolysis [Recovering/Resolving]
  - Renal failure acute [Recovering/Resolving]
